FAERS Safety Report 5102182-5 (Version None)
Quarter: 2006Q3

REPORT INFORMATION
  Report Type: 
  Country: None (occurrence: None)
  Receive Date: 20060907
  Receipt Date: 20060829
  Transmission Date: 20061208
  Serious: Yes (Hospitalization)
  Sender: FDA-Public Use
  Company Number: 2006-04733

PATIENT
  Age: 68 Year
  Sex: Female

DRUGS (9)
  1. FIORINAL [Suspect]
     Indication: BACK PAIN
     Dosage: ORAL
     Route: 048
  2. FIORINAL [Suspect]
     Indication: MIGRAINE
     Dosage: ORAL
     Route: 048
  3. ACETYL SALICYLIC ACID USP BAT [Suspect]
     Indication: BACK PAIN
     Dosage: ORAL
     Route: 048
  4. ACETYL SALICYLIC ACID USP BAT [Suspect]
     Indication: MIGRAINE
     Dosage: ORAL
     Route: 048
  5. CLONAZEPAM [Concomitant]
  6. ALENDRONATE SODIUM [Concomitant]
  7. PANTOPRAZOLE SODIUM [Concomitant]
  8. DOCUSATE [Concomitant]
  9. SERTRALINE [Concomitant]

REACTIONS (3)
  - ANALGESIC DRUG LEVEL INCREASED [None]
  - ASTHENIA [None]
  - MENTAL STATUS CHANGES [None]
